FAERS Safety Report 5478267-0 (Version None)
Quarter: 2007Q4

REPORT INFORMATION
  Report Type: 
  Country: None (occurrence: None)
  Receive Date: 20071005
  Receipt Date: 20070712
  Transmission Date: 20080405
  Serious: No
  Sender: FDA-Public Use
  Company Number: US-BRISTOL-MYERS SQUIBB COMPANY-13844469

PATIENT
  Age: 76 Year
  Weight: 86 kg

DRUGS (2)
  1. AVAPRO [Suspect]
     Indication: HYPERTENSION
     Route: 048
  2. NIASPAN [Concomitant]

REACTIONS (4)
  - DRUG INEFFECTIVE [None]
  - EYELID MARGIN CRUSTING [None]
  - EYELIDS PRURITUS [None]
  - INNER EAR DISORDER [None]
